FAERS Safety Report 25537021 (Version 5)
Quarter: 2025Q3

REPORT INFORMATION
  Report Type: Spontaneous
  Country: US (occurrence: US)
  Receive Date: 20250710
  Receipt Date: 20250903
  Transmission Date: 20251021
  Serious: Yes (Other)
  Sender: AMGEN
  Company Number: US-AMGEN-USASP2025132719

PATIENT
  Age: 50 Year
  Sex: Female
  Weight: 82.5 kg

DRUGS (32)
  1. TEPEZZA [Suspect]
     Active Substance: TEPROTUMUMAB-TRBW
     Indication: Endocrine ophthalmopathy
     Route: 040
     Dates: start: 20221114
  2. TEPEZZA [Suspect]
     Active Substance: TEPROTUMUMAB-TRBW
     Indication: Graves^ disease
     Route: 040
     Dates: start: 20221205
  3. TEPEZZA [Suspect]
     Active Substance: TEPROTUMUMAB-TRBW
     Route: 040
     Dates: start: 20230105
  4. TEPEZZA [Suspect]
     Active Substance: TEPROTUMUMAB-TRBW
     Route: 040
     Dates: start: 20230131
  5. TEPEZZA [Suspect]
     Active Substance: TEPROTUMUMAB-TRBW
     Route: 040
     Dates: start: 20230221
  6. TEPEZZA [Suspect]
     Active Substance: TEPROTUMUMAB-TRBW
     Route: 040
     Dates: start: 20230314
  7. TEPEZZA [Suspect]
     Active Substance: TEPROTUMUMAB-TRBW
     Route: 040
     Dates: start: 20230404
  8. TEPEZZA [Suspect]
     Active Substance: TEPROTUMUMAB-TRBW
     Route: 040
     Dates: start: 20230425
  9. AMBIEN [Concomitant]
     Active Substance: ZOLPIDEM TARTRATE
     Dosage: 5 MILLIGRAM, QD
     Route: 048
  10. CRESTOR [Concomitant]
     Active Substance: ROSUVASTATIN CALCIUM
     Dosage: 20 MILLIGRAM, QD
     Route: 048
  11. PHENTERMINE HYDROCHLORIDE [Concomitant]
     Active Substance: PHENTERMINE HYDROCHLORIDE
     Dosage: 15 MILLIGRAM, QD
     Route: 048
  12. SYNTHROID [Concomitant]
     Active Substance: LEVOTHYROXINE SODIUM
     Dosage: 100 MILLIGRAM, QD
     Route: 048
  13. VISTARIL [Concomitant]
     Active Substance: HYDROXYZINE PAMOATE
     Indication: Anxiety
     Route: 048
  14. VISTARIL [Concomitant]
     Active Substance: HYDROXYZINE PAMOATE
     Indication: Insomnia
  15. NEURONTIN [Concomitant]
     Active Substance: GABAPENTIN
     Dosage: 300 MILLIGRAM, TID
     Route: 048
  16. LEXAPRO [Concomitant]
     Active Substance: ESCITALOPRAM OXALATE
     Dosage: 10 MILLIGRAM, QD
     Route: 048
  17. CYMBALTA [Concomitant]
     Active Substance: DULOXETINE HYDROCHLORIDE
     Dosage: 20 MILLIGRAM, QD
     Route: 048
  18. FLEXERIL [Concomitant]
     Active Substance: CYCLOBENZAPRINE HYDROCHLORIDE
     Dosage: 10 MILLIGRAM, TID
     Route: 048
  19. ADDERALL [Concomitant]
     Active Substance: AMPHETAMINE ASPARTATE\AMPHETAMINE SULFATE\DEXTROAMPHETAMINE SACCHARATE\DEXTROAMPHETAMINE SULFATE
     Route: 065
  20. ADDERALL [Concomitant]
     Active Substance: AMPHETAMINE ASPARTATE\AMPHETAMINE SULFATE\DEXTROAMPHETAMINE SACCHARATE\DEXTROAMPHETAMINE SULFATE
     Route: 065
  21. SODIUM CHLORIDE [Concomitant]
     Active Substance: SODIUM CHLORIDE
     Route: 065
     Dates: start: 20221114
  22. DICLOFENAC [Concomitant]
     Active Substance: DICLOFENAC
     Route: 065
  23. HYDROXYZINE HYDROCHLORIDE [Concomitant]
     Active Substance: HYDROXYZINE HYDROCHLORIDE
     Route: 065
  24. HYDROXYZINE HYDROCHLORIDE [Concomitant]
     Active Substance: HYDROXYZINE HYDROCHLORIDE
     Route: 065
  25. LEVOTHYROXINE [Concomitant]
     Active Substance: LEVOTHYROXINE
     Route: 065
  26. LYRICA [Concomitant]
     Active Substance: PREGABALIN
     Route: 065
  27. MEDROL [Concomitant]
     Active Substance: METHYLPREDNISOLONE
     Route: 065
  28. ACETAMINOPHEN\HYDROCODONE [Concomitant]
     Active Substance: ACETAMINOPHEN\HYDROCODONE
     Route: 065
  29. MAXITROL [Concomitant]
     Active Substance: DEXAMETHASONE\NEOMYCIN SULFATE\POLYMYXIN B SULFATE
     Route: 065
  30. VALIUM [Concomitant]
     Active Substance: DIAZEPAM
     Route: 065
  31. XANAX [Concomitant]
     Active Substance: ALPRAZOLAM
     Route: 065
  32. ONDANSETRON [Concomitant]
     Active Substance: ONDANSETRON
     Route: 065

REACTIONS (41)
  - Deafness neurosensory [Not Recovered/Not Resolved]
  - Endocrine ophthalmopathy [Unknown]
  - Graves^ disease [Unknown]
  - Pain [Unknown]
  - Discomfort [Unknown]
  - Anxiety [Unknown]
  - Emotional distress [Unknown]
  - Impaired quality of life [Unknown]
  - Tinnitus [Not Recovered/Not Resolved]
  - Memory impairment [Unknown]
  - Muscle spasms [Unknown]
  - Fatigue [Recovered/Resolved]
  - Dehydration [Unknown]
  - Ear infection [Unknown]
  - Pyrexia [Unknown]
  - Nasopharyngitis [Unknown]
  - Chills [Unknown]
  - Ill-defined disorder [Unknown]
  - Hyperhidrosis [Unknown]
  - Chest pain [Unknown]
  - Motion sickness [Unknown]
  - Hypoaesthesia [Unknown]
  - Paraesthesia [Unknown]
  - Pruritus [Unknown]
  - Tremor [Unknown]
  - Appetite disorder [Unknown]
  - Menopause [Unknown]
  - Vomiting [Unknown]
  - Vertigo [Unknown]
  - Product use complaint [Unknown]
  - Dry throat [Unknown]
  - Muscular weakness [Unknown]
  - Dizziness [Unknown]
  - Fall [Unknown]
  - Altered visual depth perception [Unknown]
  - Periorbital swelling [Unknown]
  - Ear pain [Unknown]
  - Ear discomfort [Unknown]
  - Diarrhoea [Unknown]
  - Headache [Unknown]
  - Nausea [Unknown]

NARRATIVE: CASE EVENT DATE: 20221101
